FAERS Safety Report 7358271-8 (Version None)
Quarter: 2011Q1

REPORT INFORMATION
  Report Type: 
  Country: None (occurrence: None)
  Receive Date: 20110317
  Receipt Date: 20110310
  Transmission Date: 20110831
  Serious: Yes (Other)
  Sender: FDA-Public Use
  Company Number: US-ROCHE-765060

PATIENT
  Sex: Female
  Weight: 52.3 kg

DRUGS (1)
  1. KLONOPIN [Suspect]
     Indication: ANXIETY
     Dosage: OTHER INDICATIONS: DEPRESSION AND SLEEP
     Route: 048
     Dates: start: 19960101

REACTIONS (1)
  - DISABILITY [None]
